FAERS Safety Report 9254647 (Version 2)
Quarter: 2013Q2

REPORT INFORMATION
  Report Type: Report from Study
  Country: FR (occurrence: FR)
  Receive Date: 20130425
  Receipt Date: 20130508
  Transmission Date: 20140414
  Serious: Yes (Hospitalization)
  Sender: FDA-Public Use
  Company Number: FR-NOVOPROD-370328

PATIENT
  Age: 62 Year
  Sex: Female
  Weight: 74 kg

DRUGS (7)
  1. LIRAGLUTIDE FLEXPEN [Suspect]
     Indication: TYPE 2 DIABETES MELLITUS
     Dosage: UNK
     Dates: start: 20121227, end: 20130110
  2. JANUMET                            /06535301/ [Concomitant]
     Indication: TYPE 2 DIABETES MELLITUS
     Dosage: 2G,QD
     Route: 048
     Dates: start: 2002
  3. LANTUS [Concomitant]
     Indication: TYPE 2 DIABETES MELLITUS
     Dosage: 16 IU, QD
     Route: 058
     Dates: start: 20130111
  4. SECTRAL [Concomitant]
     Indication: HYPERTENSION
     Dosage: 400 MG, QD
     Route: 048
     Dates: start: 20130111
  5. AMLOR [Concomitant]
     Indication: HYPERTENSION
     Dosage: 10 MG, QD
     Route: 048
     Dates: start: 20130111
  6. KENZEN [Concomitant]
     Indication: HYPERTENSION
     Dosage: 32 MG, QD
     Route: 048
     Dates: start: 20130111
  7. SIMVASTATIN [Concomitant]
     Indication: DYSLIPIDAEMIA
     Dosage: 20 MG, QD
     Route: 048
     Dates: start: 2009

REACTIONS (1)
  - Pneumonia [Recovered/Resolved]
